FAERS Safety Report 6534396-1 (Version None)
Quarter: 2010Q1

REPORT INFORMATION
  Report Type: 
  Country: None (occurrence: None)
  Receive Date: 20100112
  Receipt Date: 20100104
  Transmission Date: 20100710
  Serious: Yes (Life-Threatening, Hospitalization)
  Sender: FDA-Public Use
  Company Number: FR-ABBOTT-10P-056-0617453-00

PATIENT
  Age: 15 Year
  Sex: Female

DRUGS (4)
  1. DEPAKENE [Suspect]
     Indication: EPILEPSY
     Dosage: 1.5 TABS QD
     Route: 048
     Dates: start: 20081221, end: 20090414
  2. DEPAKENE [Suspect]
     Route: 048
     Dates: start: 20090415, end: 20090418
  3. LAMICTAL [Suspect]
     Indication: EPILEPSY
     Route: 048
     Dates: start: 20090325, end: 20090415
  4. NORLEVO [Concomitant]
     Indication: DRUG USE FOR UNKNOWN INDICATION
     Route: 048
     Dates: start: 20090411

REACTIONS (5)
  - CONDITION AGGRAVATED [None]
  - DERMATITIS BULLOUS [None]
  - DRUG ERUPTION [None]
  - MUCOSA VESICLE [None]
  - TOXIC EPIDERMAL NECROLYSIS [None]
